FAERS Safety Report 8251667-1 (Version None)
Quarter: 2012Q2

REPORT INFORMATION
  Report Type: 
  Country: None (occurrence: None)
  Receive Date: 20120402
  Receipt Date: 20120201
  Transmission Date: 20120825
  Serious: No
  Sender: FDA-Public Use
  Company Number: US-ABBOTT-12P-163-0899949-00

PATIENT
  Sex: Male
  Weight: 77.18 kg

DRUGS (1)
  1. ANDROGEL [Suspect]
     Indication: BLOOD TESTOSTERONE DECREASED
     Dosage: DAILY 40MG: 1 SWIPE TO EACH SHOULDER
     Dates: start: 20120124

REACTIONS (5)
  - FATIGUE [None]
  - BENIGN PROSTATIC HYPERPLASIA [None]
  - ASTHENIA [None]
  - DYSURIA [None]
  - WEIGHT LOSS POOR [None]
